FAERS Safety Report 16361189 (Version 1)
Quarter: 2019Q2

REPORT INFORMATION
  Report Type: Spontaneous
  Country: US (occurrence: US)
  Receive Date: 20190528
  Receipt Date: 20190528
  Transmission Date: 20190711
  Serious: Yes (Death, Hospitalization, Other)
  Sender: FDA-Public Use
  Company Number: PHHY2019US121336

PATIENT
  Age: 54 Year
  Sex: Male

DRUGS (3)
  1. METOPROLOL. [Concomitant]
     Active Substance: METOPROLOL
     Indication: PRODUCT USED FOR UNKNOWN INDICATION
     Route: 065
  2. HYDROXYZINE [Concomitant]
     Active Substance: HYDROXYZINE HYDROCHLORIDE
     Indication: PRODUCT USED FOR UNKNOWN INDICATION
     Route: 065
  3. PARACETAMOL [Suspect]
     Active Substance: ACETAMINOPHEN
     Indication: PRODUCT USED FOR UNKNOWN INDICATION
     Route: 048

REACTIONS (12)
  - Hypotension [Unknown]
  - Alanine aminotransferase increased [Recovering/Resolving]
  - Coagulopathy [Unknown]
  - Cognitive disorder [Unknown]
  - Metabolic acidosis [Recovering/Resolving]
  - Methaemoglobinaemia [Recovering/Resolving]
  - Overdose [Recovering/Resolving]
  - Aspartate aminotransferase increased [Recovering/Resolving]
  - Acidosis [Recovering/Resolving]
  - Hyperlactacidaemia [Recovering/Resolving]
  - Pulseless electrical activity [Fatal]
  - Mental status changes [Unknown]
